FAERS Safety Report 9368751 (Version 4)
Quarter: 2015Q2

REPORT INFORMATION
  Report Type: Report from Study
  Country: JP (occurrence: JP)
  Receive Date: 20130626
  Receipt Date: 20150421
  Transmission Date: 20150821
  Serious: Yes (Hospitalization, Other)
  Sender: FDA-Public Use
  Company Number: JP-ASTRAZENECA-2011SE31958

PATIENT
  Age: 53 Year
  Sex: Male

DRUGS (88)
  1. NOVORAPID [Concomitant]
     Active Substance: INSULIN ASPART
     Indication: DIABETES MELLITUS
     Dosage: NUMBER OF SEPARATE DOSAGES UNKNOWN
     Route: 065
     Dates: start: 20120706, end: 20120807
  2. ASTOMIN [Concomitant]
     Active Substance: DIMEMORFAN
     Dosage: NUMBER OF SEPARATE DOSAGES UNKNOWN
     Route: 048
     Dates: start: 20130223, end: 20130228
  3. FLOMOX [Concomitant]
     Active Substance: CEFCAPENE PIVOXIL HYDROCHLORIDE HYDRATE
     Dosage: NUMBER OF SEPARATE DOSAGES UNKNOWN
     Route: 048
     Dates: start: 20120125, end: 20120201
  4. MUCODYNE [Concomitant]
     Active Substance: CARBOCYSTEINE
     Dosage: NUMBER OF SEPARATE DOSAGES UNKNOWN
     Route: 048
     Dates: start: 20130330, end: 20130402
  5. LANTUS [Concomitant]
     Active Substance: INSULIN GLARGINE
     Indication: DIABETES MELLITUS
     Dosage: NUMBER OF SEPARATE DOSAGES UNKNOWN
     Route: 065
     Dates: start: 20130122, end: 20130130
  6. LANTUS [Concomitant]
     Active Substance: INSULIN GLARGINE
     Indication: DIABETES MELLITUS
     Dosage: NUMBER OF SEPARATE DOSAGES UNKNOWN
     Route: 065
     Dates: start: 20130131, end: 20130312
  7. LANTUS [Concomitant]
     Active Substance: INSULIN GLARGINE
     Indication: DIABETES MELLITUS
     Dosage: NUMBER OF SEPARATE DOSAGES UNKNOWN
     Route: 065
     Dates: start: 20130501, end: 20130827
  8. BAYASPIRIN [Concomitant]
     Active Substance: ASPIRIN
     Dosage: NUMBER OF SEPARATE DOSAGES UNKNOWN
     Route: 048
     Dates: start: 20130307, end: 20130313
  9. CRAVIT [Concomitant]
     Active Substance: LEVOFLOXACIN
     Dosage: NUMBER OF SEPARATE DOSAGES UNKNOWN
     Route: 041
     Dates: start: 20130308, end: 20130313
  10. CEFAZOLIN [Concomitant]
     Active Substance: CEFAZOLIN
     Dates: start: 20140905, end: 20140905
  11. TRANSAMIN [Concomitant]
     Active Substance: TRANEXAMIC ACID
     Route: 048
     Dates: start: 20150217, end: 20150224
  12. CRESTOR [Suspect]
     Active Substance: ROSUVASTATIN CALCIUM
     Indication: HYPERCHOLESTEROLAEMIA
     Route: 048
     Dates: start: 20111107, end: 20120705
  13. MUCODYNE [Concomitant]
     Active Substance: CARBOCYSTEINE
     Dosage: NUMBER OF SEPARATE DOSAGES UNKNOWN
     Route: 048
     Dates: start: 20120128, end: 20120202
  14. MUCODYNE [Concomitant]
     Active Substance: CARBOCYSTEINE
     Dosage: NUMBER OF SEPARATE DOSAGES UNKNOWN
     Route: 048
     Dates: start: 20150217, end: 20150224
  15. LANTUS [Concomitant]
     Active Substance: INSULIN GLARGINE
     Indication: DIABETES MELLITUS
     Dosage: NUMBER OF SEPARATE DOSAGES UNKNOWN
     Route: 065
     Dates: start: 20130313, end: 20130430
  16. OLMETEC [Concomitant]
     Active Substance: OLMESARTAN MEDOXOMIL
     Indication: HYPERTENSION
     Dosage: NUMBER OF SEPARATE DOSAGES UNKNOWN
     Route: 065
     Dates: start: 20130313, end: 20130318
  17. ISOSORBIDE DINITRATE. [Concomitant]
     Active Substance: ISOSORBIDE DINITRATE
     Dosage: NUMBER OF SEPARATE DOSAGES UNKNOWN
     Route: 062
     Dates: start: 20140628, end: 20140705
  18. NITROPEN [Concomitant]
     Active Substance: NITROGLYCERIN
     Dosage: NUMBER OF SEPARATE DOSAGES UNKNOWN
     Route: 048
     Dates: start: 20130307, end: 20130307
  19. REMINARON [Concomitant]
     Active Substance: GABEXATE MESYLATE
     Dates: start: 20140811, end: 20140811
  20. SULTAMUGIN [Concomitant]
     Route: 042
     Dates: start: 20140806, end: 20140814
  21. SOSEGON [Concomitant]
     Active Substance: PENTAZOCINE
     Dates: start: 20140811, end: 20140811
  22. MIDAZOLAM [Concomitant]
     Active Substance: MIDAZOLAM\MIDAZOLAM HYDROCHLORIDE
     Dates: start: 20140805, end: 20140805
  23. ESLAX [Concomitant]
     Active Substance: ROCURONIUM BROMIDE
     Route: 042
     Dates: start: 20140904
  24. CRESTOR [Suspect]
     Active Substance: ROSUVASTATIN CALCIUM
     Indication: HYPERCHOLESTEROLAEMIA
     Route: 048
     Dates: start: 20110218, end: 20111106
  25. ALLEGRA [Concomitant]
     Active Substance: FEXOFENADINE HYDROCHLORIDE
     Dosage: NUMBER OF SEPARATE DOSAGES UNKNOWN
     Route: 048
     Dates: start: 20150303, end: 20150310
  26. ASTOMIN [Concomitant]
     Active Substance: DIMEMORFAN
     Dosage: NUMBER OF SEPARATE DOSAGES UNKNOWN
     Route: 048
     Dates: start: 20130330, end: 20130402
  27. METGLUCO [Concomitant]
     Active Substance: METFORMIN HYDROCHLORIDE
     Indication: DIABETES MELLITUS
     Dosage: NUMBER OF SEPARATE DOSAGES UNKNOWN
     Route: 065
     Dates: start: 20120912
  28. LANTUS [Concomitant]
     Active Substance: INSULIN GLARGINE
     Indication: DIABETES MELLITUS
     Dosage: NUMBER OF SEPARATE DOSAGES UNKNOWN
     Route: 065
     Dates: start: 20130119, end: 20130121
  29. NICORANDIL [Concomitant]
     Active Substance: NICORANDIL
     Dosage: NUMBER OF SEPARATE DOSAGES UNKNOWN
     Route: 041
     Dates: start: 20140628, end: 20140628
  30. NESINA [Concomitant]
     Active Substance: ALOGLIPTIN BENZOATE
     Indication: DIABETES MELLITUS
     Dates: start: 20140815
  31. REMINARON [Concomitant]
     Active Substance: GABEXATE MESYLATE
     Dates: start: 20140805, end: 20140805
  32. CRESTOR [Suspect]
     Active Substance: ROSUVASTATIN CALCIUM
     Indication: HYPERCHOLESTEROLAEMIA
     Route: 048
     Dates: start: 20130131
  33. NOVORAPID [Concomitant]
     Active Substance: INSULIN ASPART
     Indication: DIABETES MELLITUS
     Dosage: NUMBER OF SEPARATE DOSAGES UNKNOWN
     Route: 065
     Dates: start: 20110928, end: 20111213
  34. MICAMLO [Concomitant]
     Active Substance: AMLODIPINE BESYLATE\TELMISARTAN
     Indication: HYPERTENSION
     Dosage: NUMBER OF SEPARATE DOSAGES UNKNOWN
     Route: 048
     Dates: start: 20130131, end: 20140814
  35. LOXONIN [Concomitant]
     Active Substance: LOXOPROFEN SODIUM
     Dosage: NUMBER OF SEPARATE DOSAGES UNKNOWN
     Route: 048
     Dates: start: 20121129, end: 20121205
  36. SELBEX [Concomitant]
     Active Substance: TEPRENONE
     Dosage: NUMBER OF SEPARATE DOSAGES UNKNOWN
     Route: 048
     Dates: start: 20121129, end: 20121205
  37. LANSOPRAZOLE. [Concomitant]
     Active Substance: LANSOPRAZOLE
     Route: 048
     Dates: start: 20140628, end: 20140801
  38. SOSEGON [Concomitant]
     Active Substance: PENTAZOCINE
     Dates: start: 20140904, end: 20140904
  39. MIDAZOLAM [Concomitant]
     Active Substance: MIDAZOLAM\MIDAZOLAM HYDROCHLORIDE
     Dates: start: 20140811, end: 20140811
  40. PAZUCROSS [Concomitant]
     Active Substance: PAZUFLOXACIN MESILATE
     Route: 042
     Dates: start: 20140808, end: 20140808
  41. ROPION [Concomitant]
     Active Substance: FLURBIPROFEN AXETIL
     Route: 042
     Dates: start: 20140905, end: 20140905
  42. CRESTOR [Suspect]
     Active Substance: ROSUVASTATIN CALCIUM
     Indication: HYPERCHOLESTEROLAEMIA
     Route: 048
     Dates: start: 20120706, end: 20130130
  43. NOVORAPID [Concomitant]
     Active Substance: INSULIN ASPART
     Indication: DIABETES MELLITUS
     Dosage: NUMBER OF SEPARATE DOSAGES UNKNOWN
     Route: 065
     Dates: start: 20111214, end: 20120705
  44. MICARDIS [Concomitant]
     Active Substance: TELMISARTAN
     Indication: HYPERTENSION
     Dosage: NUMBER OF SEPARATE DOSAGES UNKNOWN
     Route: 065
     Dates: start: 20100609, end: 20130130
  45. ASTOMIN [Concomitant]
     Active Substance: DIMEMORFAN
     Dosage: NUMBER OF SEPARATE DOSAGES UNKNOWN
     Route: 048
     Dates: start: 20120125, end: 20120201
  46. ASTOMIN [Concomitant]
     Active Substance: DIMEMORFAN
     Dosage: NUMBER OF SEPARATE DOSAGES UNKNOWN
     Route: 048
     Dates: start: 20150217, end: 20150224
  47. MEDICON [Concomitant]
     Active Substance: DEXTROMETHORPHAN HYDROBROMIDE
     Dosage: NUMBER OF SEPARATE DOSAGES UNKNOWN
     Route: 048
     Dates: start: 20120128, end: 20120202
  48. EQUA [Concomitant]
     Active Substance: VILDAGLIPTIN
     Indication: DIABETES MELLITUS
     Dosage: NUMBER OF SEPARATE DOSAGES UNKNOWN
     Route: 065
     Dates: start: 20121030, end: 20140814
  49. LANTUS [Concomitant]
     Active Substance: INSULIN GLARGINE
     Indication: DIABETES MELLITUS
     Dosage: NUMBER OF SEPARATE DOSAGES UNKNOWN
     Route: 065
     Dates: start: 20130828
  50. CELECOX [Concomitant]
     Active Substance: CELECOXIB
     Dosage: NUMBER OF SEPARATE DOSAGES UNKNOWN
     Route: 048
     Dates: start: 20121206, end: 20121226
  51. NEXIUM [Concomitant]
     Active Substance: ESOMEPRAZOLE MAGNESIUM
     Route: 048
     Dates: start: 20121206, end: 20130123
  52. ASVERIN (TIPEPIDINE HIBENZATE) [Concomitant]
     Active Substance: TIPEPIDINE HIBENZATE
     Dosage: NUMBER OF SEPARATE DOSAGES UNKNOWN
     Route: 048
     Dates: start: 20130415, end: 20130422
  53. CARBAZOCHROME SODIUM SULFONATE HYDRATE [Concomitant]
     Dosage: NUMBER OF SEPARATE DOSAGES UNKNOWN
     Route: 048
     Dates: start: 20130415, end: 20130422
  54. NOVO HEPARIN [Concomitant]
     Active Substance: HEPARIN SODIUM
     Dosage: NUMBER OF SEPARATE DOSAGES UNKNOWN
     Route: 065
     Dates: start: 20140628, end: 20140628
  55. PRIMPERAN [Concomitant]
     Active Substance: METOCLOPRAMIDE HYDROCHLORIDE
     Dates: start: 20140905, end: 20140905
  56. CEFDINIR. [Concomitant]
     Active Substance: CEFDINIR
     Route: 048
     Dates: start: 20140918, end: 20140925
  57. NON-PYRINE COLD PREPARATION [Concomitant]
     Active Substance: UNSPECIFIED INGREDIENT
     Route: 048
     Dates: start: 20140918, end: 20140925
  58. LEVEMIR [Concomitant]
     Active Substance: INSULIN DETEMIR
     Indication: DIABETES MELLITUS
     Dosage: NUMBER OF SEPARATE DOSAGES UNKNOWN
     Route: 065
     Dates: start: 20110217, end: 20110827
  59. VICTOZA [Concomitant]
     Active Substance: LIRAGLUTIDE
     Indication: DIABETES MELLITUS
     Dosage: NUMBER OF SEPARATE DOSAGES UNKNOWN
     Route: 065
     Dates: start: 20110727, end: 20121029
  60. OLMETEC [Concomitant]
     Active Substance: OLMESARTAN MEDOXOMIL
     Indication: HYPERTENSION
     Dosage: NUMBER OF SEPARATE DOSAGES UNKNOWN
     Route: 065
     Dates: start: 20140814
  61. MYSER [Concomitant]
     Active Substance: DIFLUPREDNATE
     Dosage: OPTIMAL DOSE
     Route: 062
     Dates: start: 20131003, end: 20131202
  62. DRENISON [Concomitant]
     Active Substance: FLURANDRENOLIDE
     Dosage: OPTIMAL DOSE
     Route: 062
     Dates: start: 20131003, end: 20131202
  63. ZOSYN [Concomitant]
     Active Substance: PIPERACILLIN SODIUM\TAZOBACTAM SODIUM
     Dosage: NUMBER OF SEPARATE DOSAGES UNKNOWN
     Route: 042
     Dates: start: 20130222, end: 20130307
  64. FLUMAZENIL. [Concomitant]
     Active Substance: FLUMAZENIL
     Dates: start: 20140811, end: 20140811
  65. REMINARON [Concomitant]
     Active Substance: GABEXATE MESYLATE
     Dates: start: 20140812, end: 20140814
  66. SULTAMUGIN [Concomitant]
     Route: 042
     Dates: start: 20140805, end: 20140805
  67. SULTAMUGIN [Concomitant]
     Route: 042
     Dates: start: 20140810, end: 20140814
  68. PAZUCROSS [Concomitant]
     Active Substance: PAZUFLOXACIN MESILATE
     Route: 042
     Dates: start: 20140809, end: 20140811
  69. SENNARIDE [Concomitant]
     Active Substance: SENNOSIDES A AND B
     Dates: start: 20140903, end: 20140903
  70. MORPHINE HYDROCHLORIDE HYDRATE [Concomitant]
     Active Substance: MORPHINE HYDROCHLORIDE
     Dates: start: 20140904, end: 20140904
  71. CEFAZOLIN [Concomitant]
     Active Substance: CEFAZOLIN
     Dates: start: 20140904, end: 20140904
  72. LEVEMIR [Concomitant]
     Active Substance: INSULIN DETEMIR
     Indication: DIABETES MELLITUS
     Dosage: NUMBER OF SEPARATE DOSAGES UNKNOWN
     Route: 065
     Dates: start: 20110928, end: 20121128
  73. NOVORAPID [Concomitant]
     Active Substance: INSULIN ASPART
     Indication: DIABETES MELLITUS
     Dosage: NUMBER OF SEPARATE DOSAGES UNKNOWN
     Route: 065
     Dates: start: 20110218, end: 20110927
  74. NOVORAPID [Concomitant]
     Active Substance: INSULIN ASPART
     Indication: DIABETES MELLITUS
     Dosage: NUMBER OF SEPARATE DOSAGES UNKNOWN
     Route: 065
     Dates: start: 20130122, end: 20130528
  75. ALLEGRA [Concomitant]
     Active Substance: FEXOFENADINE HYDROCHLORIDE
     Dosage: NUMBER OF SEPARATE DOSAGES UNKNOWN
     Route: 048
     Dates: start: 20110310, end: 20110427
  76. PL [Concomitant]
     Active Substance: ACETAMINOPHEN\CAFFEINE\PROMETHAZINE\SALICYLAMIDE
     Dosage: NUMBER OF SEPARATE DOSAGES UNKNOWN
     Route: 048
     Dates: start: 20120125, end: 20120206
  77. TAKEPRON [Concomitant]
     Active Substance: LANSOPRAZOLE
     Dosage: NUMBER OF SEPARATE DOSAGES UNKNOWN
     Route: 048
     Dates: start: 20130124, end: 20130327
  78. AMLODIN [Concomitant]
     Active Substance: AMLODIPINE BESYLATE
     Indication: HYPERTENSION
     Dates: start: 20141215
  79. NOVORAPID [Concomitant]
     Active Substance: INSULIN ASPART
     Indication: DIABETES MELLITUS
     Dosage: NUMBER OF SEPARATE DOSAGES UNKNOWN
     Route: 065
     Dates: start: 20120808, end: 20130121
  80. METGLUCO [Concomitant]
     Active Substance: METFORMIN HYDROCHLORIDE
     Indication: DIABETES MELLITUS
     Dosage: NUMBER OF SEPARATE DOSAGES UNKNOWN
     Route: 065
     Dates: start: 20120808, end: 20120911
  81. LANTUS [Concomitant]
     Active Substance: INSULIN GLARGINE
     Indication: DIABETES MELLITUS
     Dosage: NUMBER OF SEPARATE DOSAGES UNKNOWN
     Route: 065
     Dates: start: 20121129, end: 20130118
  82. LOXONIN [Concomitant]
     Active Substance: LOXOPROFEN SODIUM
     Dosage: NUMBER OF SEPARATE DOSAGES UNKNOWN
     Route: 048
     Dates: start: 20121227, end: 20130327
  83. APIDRA [Concomitant]
     Active Substance: INSULIN GLULISINE
     Indication: DIABETES MELLITUS
     Dosage: NUMBER OF SEPARATE DOSAGES UNKNOWN
     Route: 065
     Dates: start: 20130529
  84. ISOSORBIDE DINITRATE. [Concomitant]
     Active Substance: ISOSORBIDE DINITRATE
     Dosage: NUMBER OF SEPARATE DOSAGES UNKNOWN
     Route: 062
     Dates: start: 20130307, end: 20130313
  85. SEFIROM [Concomitant]
     Active Substance: CEFTRIAXONE SODIUM
     Dosage: NUMBER OF SEPARATE DOSAGES UNKNOWN
     Route: 042
     Dates: start: 20130221, end: 20130222
  86. FLUMAZENIL. [Concomitant]
     Active Substance: FLUMAZENIL
     Dates: start: 20140805, end: 20140805
  87. SOSEGON [Concomitant]
     Active Substance: PENTAZOCINE
     Dates: start: 20140805, end: 20140805
  88. MIDAZOLAM [Concomitant]
     Active Substance: MIDAZOLAM\MIDAZOLAM HYDROCHLORIDE
     Dates: start: 20140904, end: 20140904

REACTIONS (6)
  - Pharyngitis [Recovered/Resolved]
  - Cholangitis [Recovering/Resolving]
  - Pleurisy [Recovered/Resolved]
  - Pericarditis [Recovering/Resolving]
  - Intervertebral disc protrusion [Recovering/Resolving]
  - Rhinitis allergic [Recovering/Resolving]

NARRATIVE: CASE EVENT DATE: 20110310
